FAERS Safety Report 26142642 (Version 1)
Quarter: 2025Q4

REPORT INFORMATION
  Report Type: Spontaneous
  Country: MY (occurrence: MY)
  Receive Date: 20251211
  Receipt Date: 20251211
  Transmission Date: 20260117
  Serious: Yes (Death, Hospitalization, Other)
  Sender: BRISTOL-MYERS SQUIBB COMPANY
  Company Number: MY-IPSEN Group, Research and Development-2025-29813

PATIENT
  Age: 70 Year
  Sex: Male

DRUGS (2)
  1. NIVOLUMAB [Suspect]
     Active Substance: NIVOLUMAB
     Indication: Product used for unknown indication
     Dosage: 480 MG, Q4WEEKS
  2. CABOMETYX [Suspect]
     Active Substance: CABOZANTINIB S-MALATE
     Indication: Renal cell carcinoma
     Dosage: 40 MG, QD
     Route: 048
     Dates: start: 20250724

REACTIONS (6)
  - Infected cyst [Unknown]
  - Abdominal distension [Unknown]
  - Peripheral swelling [Unknown]
  - Malignant neoplasm progression [Fatal]
  - Blood urine present [Unknown]
  - Fatigue [Unknown]

NARRATIVE: CASE EVENT DATE: 20251125
